FAERS Safety Report 17729530 (Version 1)
Quarter: 2020Q2

REPORT INFORMATION
  Report Type: Spontaneous
  Country: DE (occurrence: DE)
  Receive Date: 20200430
  Receipt Date: 20200430
  Transmission Date: 20200714
  Serious: Yes (Hospitalization, Other)
  Sender: FDA-Public Use
  Company Number: DE-PFIZER INC-2020171711

PATIENT
  Age: 29 Year
  Sex: Female
  Weight: 75 kg

DRUGS (1)
  1. CYTOTEC [Suspect]
     Active Substance: MISOPROSTOL
     Indication: LABOUR INDUCTION
     Dosage: 200 UG, SINGLE TABLET
     Route: 067
     Dates: start: 20191016

REACTIONS (9)
  - Perinatal depression [Unknown]
  - Dizziness [Unknown]
  - Off label use [Unknown]
  - Postpartum haemorrhage [Recovered/Resolved]
  - Perineal injury [Unknown]
  - Uterine tachysystole [Recovered/Resolved]
  - Asthenia [Unknown]
  - Product use in unapproved indication [Unknown]
  - Product use issue [Unknown]

NARRATIVE: CASE EVENT DATE: 201910
